FAERS Safety Report 7782606-5 (Version None)
Quarter: 2011Q3

REPORT INFORMATION
  Report Type: 
  Country: None (occurrence: None)
  Receive Date: 20110926
  Receipt Date: 20110913
  Transmission Date: 20111222
  Serious: Yes (Hospitalization, Other)
  Sender: FDA-Public Use
  Company Number: CIP11000054

PATIENT
  Age: 57 Year
  Sex: Female

DRUGS (18)
  1. VALTREX (VALACICLOVIR HYDROCHLORIDE), 1 G [Concomitant]
  2. AMOXICILLIN TRIHYDRATE W/CLAVULANTE POTASSIUM (AMOXICILLIN TRIHYDRATE, [Concomitant]
  3. ASPIRIN [Concomitant]
  4. FOSAMAX [Suspect]
     Indication: OSTEOPENIA
     Dosage: 70 MG ONCE WEEKLY, ORAL
     Route: 048
     Dates: start: 20070101, end: 20081201
  5. CYMBALTA [Concomitant]
  6. LEXAPRO [Concomitant]
  7. WELLBUTRIN XL [Concomitant]
  8. CITALOPRAM HBR (CITALOPRAM HYDROBROMIDE) [Concomitant]
  9. BACITRACIN [Concomitant]
  10. CELEXA [Concomitant]
  11. TRIAMCINOLONE [Concomitant]
  12. TRAZODONE HCL [Concomitant]
  13. AMBIEN [Concomitant]
  14. ACTONEL [Suspect]
     Indication: OSTEOPENIA
     Dosage: 35 MG ONCE WEEKLY, ORAL
     Route: 048
     Dates: start: 20030515, end: 20071022
  15. AMITRIPTYLINE /00002202/ (AMITRIPTYLINE HYDROCHLORIDE), 10 MG [Concomitant]
  16. CALCIUM PLUS D3 (CALCIUM, COLECALCIFEROL) [Concomitant]
  17. MULTIVITAMIN /00831701 (VITAMINS NOS) [Concomitant]
  18. FLONASE [Concomitant]

REACTIONS (27)
  - IMPAIRED HEALING [None]
  - LIMB INJURY [None]
  - FEMUR FRACTURE [None]
  - HAEMATOCRIT DECREASED [None]
  - MOBILITY DECREASED [None]
  - MUSCULOSKELETAL DISORDER [None]
  - MUSCLE SPASMS [None]
  - NAUSEA [None]
  - FALL [None]
  - WEIGHT BEARING DIFFICULTY [None]
  - DEVICE BREAKAGE [None]
  - DEVICE FAILURE [None]
  - GAIT DISTURBANCE [None]
  - LIMB DISCOMFORT [None]
  - VOMITING [None]
  - ARTHRALGIA [None]
  - WALKING AID USER [None]
  - PNEUMONIA [None]
  - PLEURAL EFFUSION [None]
  - VITAMIN D DECREASED [None]
  - STRESS FRACTURE [None]
  - TRAUMATIC HAEMATOMA [None]
  - LOW TURNOVER OSTEOPATHY [None]
  - BONE DISORDER [None]
  - PAIN [None]
  - PAIN IN EXTREMITY [None]
  - FRACTURE NONUNION [None]
